FAERS Safety Report 17755310 (Version 3)
Quarter: 2020Q2

REPORT INFORMATION
  Report Type: Spontaneous
  Country: US (occurrence: US)
  Receive Date: 20200507
  Receipt Date: 20200519
  Transmission Date: 20200714
  Serious: Yes (Other)
  Sender: FDA-Public Use
  Company Number: US-PFIZER INC-2020182602

PATIENT
  Age: 83 Year
  Sex: Female
  Weight: 48.08 kg

DRUGS (1)
  1. IBRANCE [Suspect]
     Active Substance: PALBOCICLIB
     Indication: BREAST CANCER METASTATIC
     Dosage: 100 MG, CYCLIC (ONCE DAILY 21 DAYS AND THEN OFF FOR 7 DAYS)
     Route: 048

REACTIONS (1)
  - Oesophageal stenosis [Unknown]
